FAERS Safety Report 11121581 (Version 1)
Quarter: 2015Q2

REPORT INFORMATION
  Report Type: Spontaneous
  Country: DE (occurrence: DE)
  Receive Date: 20150519
  Receipt Date: 20150519
  Transmission Date: 20150821
  Serious: Yes (Other)
  Sender: FDA-Public Use
  Company Number: DE-JNJFOC-20150510152

PATIENT
  Sex: Male

DRUGS (5)
  1. BISOPROLOL [Concomitant]
     Active Substance: BISOPROLOL
     Route: 048
  2. SITAGLIPTIN PHOSPHATE [Concomitant]
     Active Substance: SITAGLIPTIN PHOSPHATE
     Route: 065
  3. XARELTO [Suspect]
     Active Substance: RIVAROXABAN
     Indication: PRODUCT USED FOR UNKNOWN INDICATION
     Route: 048
  4. CANDESARTAN CILEXETIL W/HYDROCHLOROTHIAZIDE [Concomitant]
     Active Substance: CANDESARTAN CILEXETIL\HYDROCHLOROTHIAZIDE
     Route: 048
  5. SPIRONOLACTONE. [Concomitant]
     Active Substance: SPIRONOLACTONE
     Route: 048

REACTIONS (8)
  - Pruritus [Unknown]
  - Paralysis [Unknown]
  - Skin haemorrhage [Unknown]
  - Diarrhoea [Unknown]
  - Eschar [Unknown]
  - Dizziness [Unknown]
  - Contusion [Unknown]
  - Oedema peripheral [Unknown]
